FAERS Safety Report 6531972-7 (Version None)
Quarter: 2010Q1

REPORT INFORMATION
  Report Type: 
  Country: None (occurrence: None)
  Receive Date: 20100108
  Receipt Date: 20100104
  Transmission Date: 20100710
  Serious: Yes (Other)
  Sender: FDA-Public Use
  Company Number: US-PFIZER INC-2010001956

PATIENT
  Sex: Male
  Weight: 86.182 kg

DRUGS (6)
  1. LIPITOR [Suspect]
     Indication: BLOOD CHOLESTEROL
     Dosage: 10 MG, 1X/DAY
     Dates: start: 20091201
  2. SYNTHROID [Concomitant]
  3. IBUPROFEN [Concomitant]
     Dosage: FREQUENCY: AS NEEDED,
  4. COD-LIVER OIL [Concomitant]
  5. CO-Q-10 [Concomitant]
  6. VITAMIN D [Concomitant]

REACTIONS (1)
  - PALPITATIONS [None]
